FAERS Safety Report 12037511 (Version 1)
Quarter: 2016Q1

REPORT INFORMATION
  Report Type: Spontaneous
  Country: US (occurrence: None)
  Receive Date: 20160205
  Receipt Date: 20160205
  Transmission Date: 20160526
  Serious: Yes (Disabling)
  Sender: FDA-Public Use
  Company Number: None

PATIENT
  Age: 35 Year
  Sex: Female
  Weight: 79.38 kg

DRUGS (8)
  1. WELLBUTRIN XL [Concomitant]
     Active Substance: BUPROPION HYDROCHLORIDE
  2. S.A.D. LIGHT [Concomitant]
  3. LATUDA [Suspect]
     Active Substance: LURASIDONE HYDROCHLORIDE
     Indication: BIPOLAR DISORDER
     Route: 048
     Dates: start: 20160131, end: 20160204
  4. LITHIUM. [Concomitant]
     Active Substance: LITHIUM
  5. RITALIN [Concomitant]
     Active Substance: METHYLPHENIDATE HYDROCHLORIDE
  6. L-METHIONINE [Concomitant]
  7. BREVICON BIRTH CONTROL [Concomitant]
  8. CHLOROPHYLL [Concomitant]

REACTIONS (9)
  - Insomnia [None]
  - Muscle spasms [None]
  - Vomiting [None]
  - Abdominal pain [None]
  - Nausea [None]
  - Musculoskeletal stiffness [None]
  - Headache [None]
  - Gait disturbance [None]
  - Tremor [None]

NARRATIVE: CASE EVENT DATE: 20160131
